FAERS Safety Report 21048143 (Version 1)
Quarter: 2022Q3

REPORT INFORMATION
  Report Type: Spontaneous
  Country: JP (occurrence: JP)
  Receive Date: 20220706
  Receipt Date: 20220706
  Transmission Date: 20221026
  Serious: Yes (Hospitalization, Other)
  Sender: FDA-Public Use
  Company Number: JP-ELI_LILLY_AND_COMPANY-JP201911006137

PATIENT
  Age: 83 Year
  Sex: Female

DRUGS (4)
  1. CYRAMZA [Suspect]
     Active Substance: RAMUCIRUMAB
     Indication: Gastric cancer recurrent
     Dosage: 8 MG/KG, OTHER
     Route: 041
  2. CYRAMZA [Suspect]
     Active Substance: RAMUCIRUMAB
     Dosage: 6 MG/KG, OTHER
     Route: 041
  3. PACLITAXEL [Suspect]
     Active Substance: PACLITAXEL
     Indication: Gastric cancer recurrent
     Dosage: 80 MG/M2, OTHER
     Route: 065
  4. PACLITAXEL [Suspect]
     Active Substance: PACLITAXEL
     Dosage: 60 MG/M2, OTHER
     Route: 065

REACTIONS (5)
  - Femur fracture [Recovered/Resolved]
  - Proteinuria [Unknown]
  - Neuropathy peripheral [Unknown]
  - Neutropenia [Unknown]
  - Hypertension [Unknown]
